FAERS Safety Report 6552914-4 (Version None)
Quarter: 2010Q1

REPORT INFORMATION
  Report Type: 
  Country: None (occurrence: None)
  Receive Date: 20100122
  Receipt Date: 20100115
  Transmission Date: 20100710
  Serious: Yes (Disabling)
  Sender: FDA-Public Use
  Company Number: 2009SP036329

PATIENT
  Age: 32 Year
  Sex: Female

DRUGS (6)
  1. DIPROSPAN (BETAMETHASONE SODIUM PHOSPHATE/DIPROPIONATE) (BETAMETHASONE [Suspect]
     Indication: PAIN IN EXTREMITY
     Dosage: ONCE ; 40 MG;ONCE ; 40 MG;ONCE
     Dates: start: 20060524, end: 20060524
  2. DIPROSPAN (BETAMETHASONE SODIUM PHOSPHATE/DIPROPIONATE) (BETAMETHASONE [Suspect]
     Indication: PAIN IN EXTREMITY
     Dosage: ONCE ; 40 MG;ONCE ; 40 MG;ONCE
     Dates: start: 20061005, end: 20061005
  3. DIPROSPAN (BETAMETHASONE SODIUM PHOSPHATE/DIPROPIONATE) (BETAMETHASONE [Suspect]
     Indication: PAIN IN EXTREMITY
     Dosage: ONCE ; 40 MG;ONCE ; 40 MG;ONCE
     Dates: start: 20061116, end: 20061116
  4. DEPO-MEDROL [Suspect]
     Indication: PAIN IN EXTREMITY
     Dosage: 40 MG ; 40 MG
     Dates: start: 20061005, end: 20061006
  5. DEPO-MEDROL [Suspect]
     Indication: PAIN IN EXTREMITY
     Dosage: 40 MG ; 40 MG
     Dates: start: 20061116, end: 20061116
  6. LIDOCAINE [Concomitant]

REACTIONS (4)
  - ATROPHY [None]
  - GAIT DISTURBANCE [None]
  - PAIN [None]
  - TENDERNESS [None]
